FAERS Safety Report 6972639-0 (Version None)
Quarter: 2010Q3

REPORT INFORMATION
  Report Type: 
  Country: None (occurrence: None)
  Receive Date: 20100909
  Receipt Date: 20100831
  Transmission Date: 20110219
  Serious: Yes (Other)
  Sender: FDA-Public Use
  Company Number: CA-JNJFOC-20100207102

PATIENT
  Sex: Female
  Weight: 52.8 kg

DRUGS (5)
  1. REMICADE [Suspect]
     Indication: CROHN'S DISEASE
     Route: 042
  2. METHOTREXATE [Concomitant]
     Route: 048
  3. LEUCOVORIN CALCIUM [Concomitant]
     Route: 048
  4. PRILOSEC [Concomitant]
  5. TRIQUILAR [Concomitant]

REACTIONS (2)
  - DEPRESSION [None]
  - SUICIDAL IDEATION [None]
